FAERS Safety Report 11707585 (Version 1)
Quarter: 2015Q4

REPORT INFORMATION
  Report Type: Spontaneous
  Country: US (occurrence: US)
  Receive Date: 20151104
  Receipt Date: 20151104
  Transmission Date: 20160304
  Serious: No
  Sender: FDA-Public Use
  Company Number: US-ELI_LILLY_AND_COMPANY-US201102002054

PATIENT
  Sex: Female

DRUGS (1)
  1. FORTEO [Suspect]
     Active Substance: TERIPARATIDE
     Indication: OSTEOPOROSIS
     Dosage: 20 UG, DAILY (1/D)
     Dates: start: 20101203, end: 20110204

REACTIONS (5)
  - Pain in extremity [Recovered/Resolved]
  - Bone pain [Unknown]
  - Muscle spasms [Not Recovered/Not Resolved]
  - Blood calcium increased [Unknown]
  - Sleep disorder due to a general medical condition [Unknown]
